FAERS Safety Report 5641029-5 (Version None)
Quarter: 2008Q1

REPORT INFORMATION
  Report Type: 
  Country: None (occurrence: None)
  Receive Date: 20080225
  Receipt Date: 20080215
  Transmission Date: 20080703
  Serious: Yes (Death, Life-Threatening, Hospitalization)
  Sender: FDA-Public Use
  Company Number: GXKR2006GB02469

PATIENT
  Sex: Female
  Weight: 150 kg

DRUGS (9)
  1. SIMVASTATIN [Suspect]
     Dosage: 40 MG, ORAL
     Route: 048
  2. ERYTHROMYCIN [Suspect]
     Dosage: 500 MG, TID, ORAL
     Route: 048
     Dates: start: 20060325
  3. DIHYDROCODEINE COMPOUND [Concomitant]
  4. AMITRIPTYLINE HCL [Concomitant]
  5. BUMETANIDE [Concomitant]
  6. LEVOTHYROXINE SODIUM [Concomitant]
  7. LISINOPRIL [Concomitant]
  8. METFORMIN (METFORMIN) [Concomitant]
  9. ROSIGLITAZONE [Concomitant]

REACTIONS (10)
  - CHRONIC OBSTRUCTIVE PULMONARY DISEASE [None]
  - CIRCULATORY COLLAPSE [None]
  - CONFUSIONAL STATE [None]
  - DECUBITUS ULCER [None]
  - MALAISE [None]
  - RENAL FAILURE ACUTE [None]
  - RHABDOMYOLYSIS [None]
  - SEPSIS [None]
  - SKIN ULCER [None]
  - WOUND NECROSIS [None]
